FAERS Safety Report 4335965-X (Version None)
Quarter: 2004Q2

REPORT INFORMATION
  Report Type: 
  Country: None (occurrence: None)
  Receive Date: 20040406
  Receipt Date: 20040326
  Transmission Date: 20050107
  Serious: Yes (Hospitalization)
  Sender: FDA-Public Use
  Company Number: 2003PK01469

PATIENT
  Age: 73 Year
  Sex: Male

DRUGS (13)
  1. IRESSA [Suspect]
     Indication: COLORECTAL CANCER
     Dosage: 250 MG DAILY; PO
     Route: 048
     Dates: start: 20030709, end: 20030724
  2. IRESSA [Suspect]
     Indication: COLORECTAL CANCER
     Dosage: 250 MG DAILY; PO
     Route: 048
     Dates: start: 20030801, end: 20030819
  3. IRINOTECAN [Suspect]
     Indication: COLORECTAL CANCER
     Dosage: NI
     Dates: start: 20030709, end: 20030709
  4. IRINOTECAN [Suspect]
     Indication: COLORECTAL CANCER
     Dosage: NI
     Dates: start: 20030718, end: 20030718
  5. IRINOTECAN [Suspect]
     Indication: COLORECTAL CANCER
     Dosage: NI
     Dates: start: 20030804, end: 20030804
  6. IRINOTECAN [Suspect]
     Indication: COLORECTAL CANCER
     Dosage: NI
     Dates: start: 20030804, end: 20030804
  7. FLUOROURACIL [Suspect]
     Indication: COLORECTAL CANCER
     Dosage: NI
     Dates: start: 20030709, end: 20030709
  8. FLUOROURACIL [Suspect]
     Indication: COLORECTAL CANCER
     Dosage: NI
     Dates: start: 20030716, end: 20030716
  9. FLUOROURACIL [Suspect]
     Indication: COLORECTAL CANCER
     Dosage: NI
     Dates: start: 20030804, end: 20030804
  10. LEUCOVORIN CALCIUM [Suspect]
     Indication: COLORECTAL CANCER
     Dosage: NI
  11. KEVATRIL [Concomitant]
  12. CIPROBAY [Concomitant]
  13. RED BLOOD CELLS [Concomitant]

REACTIONS (5)
  - ANOREXIA [None]
  - LUNG ABSCESS [None]
  - METASTASES TO LUNG [None]
  - STAPHYLOCOCCAL ABSCESS [None]
  - WEIGHT DECREASED [None]
